FAERS Safety Report 12501690 (Version 1)
Quarter: 2016Q2

REPORT INFORMATION
  Report Type: Spontaneous
  Country: US (occurrence: US)
  Receive Date: 20160627
  Receipt Date: 20160627
  Transmission Date: 20160815
  Serious: Yes (Hospitalization, Other)
  Sender: FDA-Public Use
  Company Number: US-SMITH AND NEPHEW, INC-2016SMT00533

PATIENT
  Age: 45 Year
  Sex: Male
  Weight: 91.16 kg

DRUGS (4)
  1. COLLAGENASE SANTYL [Suspect]
     Active Substance: COLLAGENASE CLOSTRIDIUM HISTOLYTICUM
     Indication: DECUBITUS ULCER
     Dosage: UNK, 1X/DAY
     Route: 061
     Dates: start: 201512, end: 20160608
  2. LIDOCAINE. [Concomitant]
     Active Substance: LIDOCAINE
     Indication: DECUBITUS ULCER
     Dosage: UNK
     Dates: start: 201512
  3. REGRANEX [Suspect]
     Active Substance: BECAPLERMIN
     Indication: WOUND
     Dosage: UNK UNK, 1X/DAY
     Route: 061
     Dates: start: 2016, end: 20160608
  4. UNSPECIFIED MEDICATIONS [Concomitant]
     Active Substance: UNSPECIFIED INGREDIENT

REACTIONS (3)
  - Application site pain [Unknown]
  - Foot amputation [Recovered/Resolved with Sequelae]
  - Wound complication [Recovered/Resolved with Sequelae]

NARRATIVE: CASE EVENT DATE: 2016
